FAERS Safety Report 25540340 (Version 3)
Quarter: 2025Q3

REPORT INFORMATION
  Report Type: Spontaneous
  Country: US (occurrence: US)
  Receive Date: 20250710
  Receipt Date: 20250808
  Transmission Date: 20251020
  Serious: No
  Sender: BIOGEN
  Company Number: US-BIOGEN-2024BI01251985

PATIENT
  Sex: Male

DRUGS (1)
  1. TYSABRI [Suspect]
     Active Substance: NATALIZUMAB
     Indication: Multiple sclerosis
     Route: 050
     Dates: start: 20150512

REACTIONS (4)
  - Product dose omission in error [Unknown]
  - Bipolar disorder [Not Recovered/Not Resolved]
  - Multiple sclerosis [Unknown]
  - Depression [Not Recovered/Not Resolved]
